FAERS Safety Report 20910562 (Version 1)
Quarter: 2022Q2

REPORT INFORMATION
  Report Type: Spontaneous
  Country: US (occurrence: None)
  Receive Date: 20220602
  Receipt Date: 20220602
  Transmission Date: 20220720
  Serious: Yes (Hospitalization, Other)
  Sender: FDA-Public Use
  Company Number: None

PATIENT
  Age: 65 Year
  Sex: Male
  Weight: 103 kg

DRUGS (1)
  1. PEGLOTICASE [Suspect]
     Active Substance: PEGLOTICASE
     Indication: Gout
     Dosage: 250 ML MILLITRE (S)  EVERY TWO WEEKS ?
     Route: 042
     Dates: start: 20220401, end: 20220513

REACTIONS (9)
  - Infusion related reaction [None]
  - Pruritus [None]
  - Pruritus [None]
  - Urticaria [None]
  - Burning sensation [None]
  - Mouth swelling [None]
  - Eye swelling [None]
  - Ocular hyperaemia [None]
  - Lacrimation increased [None]

NARRATIVE: CASE EVENT DATE: 20220513
